FAERS Safety Report 15232917 (Version 2)
Quarter: 2018Q4

REPORT INFORMATION
  Report Type: Report from Study
  Country: ES (occurrence: ES)
  Receive Date: 20180802
  Receipt Date: 20181012
  Transmission Date: 20190204
  Serious: Yes (Life-Threatening, Other)
  Sender: FDA-Public Use
  Company Number: ES-ASTRAZENECA-2018SE97715

PATIENT
  Age: 23233 Day
  Sex: Male
  Weight: 92 kg

DRUGS (4)
  1. STILNOX [Concomitant]
     Active Substance: ZOLPIDEM TARTRATE
     Indication: TOXICITY TO VARIOUS AGENTS
     Dates: start: 20180220
  2. FENDIVIA [Concomitant]
     Active Substance: FENTANYL
     Indication: PAIN
     Dates: start: 20180618
  3. DURVALUMAB. [Suspect]
     Active Substance: DURVALUMAB
     Indication: LUNG NEOPLASM
     Dosage: 10 MG/KG EACH 15 DAYS
     Route: 042
     Dates: start: 20180207, end: 20180731
  4. HIDROXIL [Concomitant]
     Active Substance: ALUMINUM HYDROXIDE
     Indication: HYPOVITAMINOSIS
     Dates: start: 20180420

REACTIONS (5)
  - Hyperhidrosis [Recovered/Resolved]
  - Tachycardia [Recovered/Resolved]
  - Infusion related reaction [Recovered/Resolved]
  - Hypertension [Recovered/Resolved]
  - Dyspnoea [Recovered/Resolved]

NARRATIVE: CASE EVENT DATE: 20180730
